FAERS Safety Report 21773202 (Version 21)
Quarter: 2025Q1

REPORT INFORMATION
  Report Type: Report from Study
  Country: US (occurrence: US)
  Receive Date: 20221223
  Receipt Date: 20250326
  Transmission Date: 20250408
  Serious: Yes (Hospitalization, Other)
  Sender: TAKEDA
  Company Number: US-TAKEDA-2022TUS100632

PATIENT
  Sex: Female
  Weight: 68 kg

DRUGS (58)
  1. HUMAN IMMUNOGLOBULIN G [Suspect]
     Active Substance: HUMAN IMMUNOGLOBULIN G
     Indication: Immunodeficiency common variable
     Dosage: 30 GRAM, Q4WEEKS
     Dates: start: 20191017
  2. HUMAN IMMUNOGLOBULIN G [Suspect]
     Active Substance: HUMAN IMMUNOGLOBULIN G
     Indication: Selective IgG subclass deficiency
     Dosage: 30 GRAM, Q4WEEKS
     Dates: start: 20200116
  3. EPINEPHRINE [Concomitant]
     Active Substance: EPINEPHRINE
  4. HEPARIN [Concomitant]
     Active Substance: HEPARIN SODIUM
     Indication: Product used for unknown indication
  5. DIPHENHYDRAMINE HYDROCHLORIDE [Concomitant]
     Active Substance: DIPHENHYDRAMINE HYDROCHLORIDE
  6. OXYCODONE HYDROCHLORIDE [Concomitant]
     Active Substance: OXYCODONE HYDROCHLORIDE
  7. METOPROLOL SUCCINATE [Concomitant]
     Active Substance: METOPROLOL SUCCINATE
  8. SODIUM CHLORIDE [Concomitant]
     Active Substance: SODIUM CHLORIDE
  9. ARIPIPRAZOLE [Concomitant]
     Active Substance: ARIPIPRAZOLE
  10. TRELEGY ELLIPTA [Concomitant]
     Active Substance: FLUTICASONE FUROATE\UMECLIDINIUM BROMIDE\VILANTEROL TRIFENATATE
  11. ACETAMINOPHEN [Concomitant]
     Active Substance: ACETAMINOPHEN
  12. EFFEXOR [Concomitant]
     Active Substance: VENLAFAXINE HYDROCHLORIDE
  13. DICYCLOMINE HYDROCHLORIDE [Concomitant]
     Active Substance: DICYCLOMINE HYDROCHLORIDE
  14. METRONIDAZOLE [Concomitant]
     Active Substance: METRONIDAZOLE
  15. ATORVASTATIN CALCIUM [Concomitant]
     Active Substance: ATORVASTATIN CALCIUM
  16. ONDANSETRON [Concomitant]
     Active Substance: ONDANSETRON
  17. ALBUTEROL SULFATE [Concomitant]
     Active Substance: ALBUTEROL SULFATE
  18. LINZESS [Concomitant]
     Active Substance: LINACLOTIDE
  19. SYNTHROID [Concomitant]
     Active Substance: LEVOTHYROXINE SODIUM
  20. DEXTROSE [Concomitant]
     Active Substance: DEXTROSE MONOHYDRATE
  21. Lmx [Concomitant]
  22. PANTOPRAZOLE SODIUM [Concomitant]
     Active Substance: PANTOPRAZOLE SODIUM
  23. PROMETHAZINE HYDROCHLORIDE [Concomitant]
     Active Substance: PROMETHAZINE HYDROCHLORIDE
  24. XARELTO [Concomitant]
     Active Substance: RIVAROXABAN
  25. TRIAZOLAM [Concomitant]
     Active Substance: TRIAZOLAM
     Indication: Product used for unknown indication
  26. HYDROXYZINE [Concomitant]
     Active Substance: HYDROXYZINE HYDROCHLORIDE
     Indication: Product used for unknown indication
  27. WELLBUTRIN [Concomitant]
     Active Substance: BUPROPION HYDROCHLORIDE
     Indication: Product used for unknown indication
  28. LIDOCAINE [Concomitant]
     Active Substance: LIDOCAINE
     Indication: Product used for unknown indication
  29. VENTOLIN [Concomitant]
     Active Substance: ALBUTEROL SULFATE
     Indication: Product used for unknown indication
  30. ALPRAZOLAM [Concomitant]
     Active Substance: ALPRAZOLAM
     Indication: Product used for unknown indication
  31. DRONABINOL [Concomitant]
     Active Substance: DRONABINOL
     Indication: Product used for unknown indication
  32. TOPAMAX [Concomitant]
     Active Substance: TOPIRAMATE
     Indication: Product used for unknown indication
  33. REXULTI [Concomitant]
     Active Substance: BREXPIPRAZOLE
     Indication: Product used for unknown indication
  34. SINGULAIR [Concomitant]
     Active Substance: MONTELUKAST SODIUM
  35. PREDNISONE [Concomitant]
     Active Substance: PREDNISONE
  36. BUSPIRONE HCL [Concomitant]
     Active Substance: BUSPIRONE HYDROCHLORIDE
  37. FERROUS SULFATE [Concomitant]
     Active Substance: FERROUS SULFATE
  38. MODAFINIL [Concomitant]
     Active Substance: MODAFINIL
  39. BUSPIRONE [Concomitant]
     Active Substance: BUSPIRONE HYDROCHLORIDE
  40. DIPHENHYDRAMINE [Concomitant]
     Active Substance: DIPHENHYDRAMINE
  41. LEVOFLOXACIN [Concomitant]
     Active Substance: LEVOFLOXACIN
  42. RITUXAN [Concomitant]
     Active Substance: RITUXIMAB
  43. ASPIRIN [Concomitant]
     Active Substance: ASPIRIN
  44. DOXYCYCLINE HYCLATE [Concomitant]
     Active Substance: DOXYCYCLINE HYCLATE
  45. GABAPENTIN [Concomitant]
     Active Substance: GABAPENTIN
  46. CLOMIPRAMINE HYDROCHLORIDE [Concomitant]
     Active Substance: CLOMIPRAMINE HYDROCHLORIDE
  47. PRAZOSIN HYDROCHLORIDE [Concomitant]
     Active Substance: PRAZOSIN HYDROCHLORIDE
  48. HYDROXYZINE HYDROCHLORIDE [Concomitant]
     Active Substance: HYDROXYZINE HYDROCHLORIDE
  49. ROPINIROLE HYDROCHLORIDE [Concomitant]
     Active Substance: ROPINIROLE HYDROCHLORIDE
  50. AZATHIOPRINE [Concomitant]
     Active Substance: AZATHIOPRINE
  51. METHOCARBAMOL [Concomitant]
     Active Substance: METHOCARBAMOL
  52. CLOMIPRAMINE HYDROCHLORIDE [Concomitant]
     Active Substance: CLOMIPRAMINE HYDROCHLORIDE
  53. METOPROLOL TARTRATE [Concomitant]
     Active Substance: METOPROLOL TARTRATE
  54. CALCIUM\CHOLECALCIFEROL [Concomitant]
     Active Substance: CALCIUM\CHOLECALCIFEROL
  55. AMOXICILLIN [Concomitant]
     Active Substance: AMOXICILLIN
  56. GAMUNEX-C [Concomitant]
     Active Substance: HUMAN IMMUNOGLOBULIN G
  57. PROTONIX [Concomitant]
     Active Substance: PANTOPRAZOLE SODIUM
  58. PEPCID [Concomitant]
     Active Substance: FAMOTIDINE

REACTIONS (30)
  - Mental disorder [Unknown]
  - Intestinal obstruction [Unknown]
  - Pneumonia [Unknown]
  - Sepsis [Unknown]
  - Myelitis transverse [Unknown]
  - Body temperature abnormal [Unknown]
  - Ileus [Unknown]
  - Lymphoedema [Unknown]
  - Impaired gastric emptying [Unknown]
  - Hepatic artery occlusion [Unknown]
  - Abdominal distension [Unknown]
  - Muscular weakness [Unknown]
  - Flushing [Unknown]
  - Dyspnoea [Unknown]
  - Vomiting [Recovering/Resolving]
  - Abdominal pain [Unknown]
  - Nausea [Recovering/Resolving]
  - Cutaneous vasculitis [Unknown]
  - Herpes zoster [Recovered/Resolved]
  - Catheter site pain [Unknown]
  - Gastrointestinal inflammation [Unknown]
  - Gastrointestinal disorder [Unknown]
  - Pleural effusion [Unknown]
  - Respiratory tract infection [Unknown]
  - Fall [Unknown]
  - Limb injury [Unknown]
  - Walking aid user [Unknown]
  - Tooth abscess [Recovered/Resolved]
  - Sinusitis [Recovered/Resolved]
  - Contusion [Unknown]
